FAERS Safety Report 7681237-5 (Version None)
Quarter: 2011Q3

REPORT INFORMATION
  Report Type: 
  Country: None (occurrence: None)
  Receive Date: 20110804
  Receipt Date: 20110720
  Transmission Date: 20111222
  Serious: No
  Sender: FDA-Public Use
  Company Number: 2011SP029321

PATIENT
  Age: 42 Year
  Sex: Female
  Weight: 58.0604 kg

DRUGS (7)
  1. CLARITIN REDITABS [Suspect]
     Indication: RHINORRHOEA
     Dosage: 10 MG;ONCE;PO
     Route: 048
     Dates: start: 20110526
  2. CLARITIN REDITABS [Suspect]
     Indication: SEASONAL ALLERGY
     Dosage: 10 MG;ONCE;PO
     Route: 048
     Dates: start: 20110526
  3. CLARITIN REDITABS [Suspect]
     Indication: EYE PRURITUS
     Dosage: 10 MG;ONCE;PO
     Route: 048
     Dates: start: 20110526
  4. CLARITIN REDITABS [Suspect]
     Indication: HYPERSENSITIVITY
     Dosage: 10 MG;ONCE;PO
     Route: 048
     Dates: start: 20110526
  5. CLARITIN REDITABS [Suspect]
     Indication: LACRIMATION INCREASED
     Dosage: 10 MG;ONCE;PO
     Route: 048
     Dates: start: 20110526
  6. CLARITIN REDITABS [Suspect]
     Indication: THROAT IRRITATION
     Dosage: 10 MG;ONCE;PO
     Route: 048
     Dates: start: 20110526
  7. MULTI-VITAMIN [Concomitant]

REACTIONS (3)
  - DRUG INEFFECTIVE [None]
  - THROAT TIGHTNESS [None]
  - PHARYNGEAL OEDEMA [None]
